FAERS Safety Report 9440152 (Version 2)
Quarter: 2013Q4

REPORT INFORMATION
  Report Type: Spontaneous
  Country: CH (occurrence: CH)
  Receive Date: 20130805
  Receipt Date: 20131022
  Transmission Date: 20140711
  Serious: Yes (Other)
  Sender: FDA-Public Use
  Company Number: CH-ELI_LILLY_AND_COMPANY-CH201304004596

PATIENT
  Age: 37 Year
  Sex: Male
  Weight: 66 kg

DRUGS (6)
  1. ZYPADHERA [Suspect]
     Indication: SCHIZOPHRENIA
     Dosage: 210 MG, EVERY TWO WEEKS
     Route: 030
     Dates: start: 20130307
  2. OLANZAPINE [Suspect]
     Dosage: 15 MG, QD
     Route: 048
     Dates: start: 20130220, end: 20130314
  3. OLANZAPINE [Suspect]
     Dosage: 5 MG, QD
     Dates: start: 20130315, end: 20130321
  4. OLANZAPINE [Suspect]
     Dosage: 2.5 MG, QID
     Route: 048
     Dates: start: 20130322, end: 20130325
  5. DIAZEPAM [Concomitant]
     Indication: INSOMNIA
     Dosage: 10 MG, QD
     Route: 048
     Dates: start: 20130306, end: 20130306
  6. DIAZEPAM [Concomitant]
     Dosage: 5 MG, QD
     Route: 048
     Dates: start: 20130307

REACTIONS (7)
  - Tachycardia [Recovered/Resolved]
  - Drug level increased [Recovered/Resolved]
  - Somnolence [Recovered/Resolved]
  - Confusional state [Recovered/Resolved]
  - Oxygen saturation decreased [Recovered/Resolved]
  - Dysarthria [Unknown]
  - Prescribed overdose [Recovered/Resolved]
